FAERS Safety Report 13275385 (Version 2)
Quarter: 2017Q1

REPORT INFORMATION
  Report Type: Report from Study
  Country: US (occurrence: US)
  Receive Date: 20170228
  Receipt Date: 20170304
  Transmission Date: 20170428
  Serious: Yes (Other)
  Sender: FDA-Public Use
  Company Number: US-AMGEN-USASL2017029272

PATIENT
  Age: 53 Year
  Sex: Female

DRUGS (1)
  1. ENBREL [Suspect]
     Active Substance: ETANERCEPT
     Indication: PSORIASIS
     Dosage: 50 MG, QWK
     Route: 065
     Dates: start: 200806

REACTIONS (12)
  - Injection site haemorrhage [Unknown]
  - Spinal operation [Unknown]
  - Injection site extravasation [Unknown]
  - Drug dose omission [Unknown]
  - Intervertebral disc degeneration [Unknown]
  - Injection site erythema [Unknown]
  - Acne [Unknown]
  - Dermatitis [Unknown]
  - Injection site pruritus [Unknown]
  - Uterine leiomyoma [Unknown]
  - Wrong technique in product usage process [Unknown]
  - Psoriasis [Not Recovered/Not Resolved]

NARRATIVE: CASE EVENT DATE: 201702
